FAERS Safety Report 17077586 (Version 1)
Quarter: 2019Q4

REPORT INFORMATION
  Report Type: Report from Study
  Country: US (occurrence: US)
  Receive Date: 20191126
  Receipt Date: 20191126
  Transmission Date: 20200122
  Serious: Yes (Death, Hospitalization)
  Sender: FDA-Public Use
  Company Number: US-ACTELION-A-NJ2019-197626

PATIENT
  Age: 69 Year
  Sex: Male
  Weight: 66.21 kg

DRUGS (5)
  1. VELETRI [Suspect]
     Active Substance: EPOPROSTENOL
     Indication: PULMONARY ARTERIAL HYPERTENSION
     Dosage: 11.44 NG/KG, PER MIN
     Route: 042
  2. LETAIRIS [Concomitant]
     Active Substance: AMBRISENTAN
  3. VELETRI [Suspect]
     Active Substance: EPOPROSTENOL
     Dosage: 10.56 NG/KG, PER MIN
     Route: 042
     Dates: end: 20191114
  4. TYVASO [Concomitant]
     Active Substance: TREPROSTINIL
  5. REVATIO [Concomitant]
     Active Substance: SILDENAFIL CITRATE

REACTIONS (19)
  - Pain in jaw [Unknown]
  - Dizziness [Unknown]
  - Localised oedema [Unknown]
  - Abdominal discomfort [Recovering/Resolving]
  - Visual impairment [Unknown]
  - Dyspnoea [Unknown]
  - Weight increased [Unknown]
  - Rash [Unknown]
  - Catheter site irritation [Recovered/Resolved]
  - Therapy non-responder [Unknown]
  - Weight decreased [Recovering/Resolving]
  - Muscular weakness [Not Recovered/Not Resolved]
  - Epistaxis [Recovered/Resolved]
  - Condition aggravated [Unknown]
  - Unevaluable event [Unknown]
  - Petechiae [Unknown]
  - Oedema peripheral [Unknown]
  - Road traffic accident [Fatal]
  - Headache [Unknown]

NARRATIVE: CASE EVENT DATE: 201910
